FAERS Safety Report 6749803-9 (Version None)
Quarter: 2010Q2

REPORT INFORMATION
  Report Type: 
  Country: None (occurrence: None)
  Receive Date: 20100601
  Receipt Date: 20100525
  Transmission Date: 20101027
  Serious: Yes (Other)
  Sender: FDA-Public Use
  Company Number: AU-MERCK-1005USA04310

PATIENT
  Sex: Female

DRUGS (2)
  1. NOROXIN [Suspect]
     Route: 048
  2. CELESTONE M [Concomitant]
     Indication: RASH
     Route: 061

REACTIONS (2)
  - PRURITUS [None]
  - SYSTEMIC LUPUS ERYTHEMATOSUS [None]
